FAERS Safety Report 9629239 (Version 1)
Quarter: 2013Q4

REPORT INFORMATION
  Report Type: Spontaneous
  Country: US (occurrence: US)
  Receive Date: 20131017
  Receipt Date: 20131017
  Transmission Date: 20140711
  Serious: No
  Sender: FDA-Public Use
  Company Number: US-ASTRAZENECA-2013SE66686

PATIENT
  Age: 60 Year
  Sex: Female
  Weight: 110.7 kg

DRUGS (22)
  1. NEXIUM EERD [Suspect]
     Indication: GASTROOESOPHAGEAL REFLUX DISEASE
     Route: 048
  2. NEXIUM EERD [Suspect]
     Indication: GASTROOESOPHAGEAL REFLUX DISEASE
     Route: 048
     Dates: start: 2003
  3. CRESTOR [Suspect]
     Indication: BLOOD TRIGLYCERIDES INCREASED
     Route: 048
     Dates: start: 2008
  4. CRESTOR [Suspect]
     Indication: HYPERLIPIDAEMIA
     Route: 048
     Dates: start: 2008
  5. CHOLESTEROL MEDICATION [Suspect]
     Indication: BLOOD CHOLESTEROL ABNORMAL
     Route: 065
  6. DILITAZEM ER [Concomitant]
     Indication: ANGINA PECTORIS
     Route: 048
     Dates: start: 2000
  7. DILITAZEM ER [Concomitant]
     Indication: SUPRAVENTRICULAR TACHYCARDIA
     Route: 048
     Dates: start: 2000
  8. DILITAZEM ER [Concomitant]
     Indication: HYPERTENSION
     Route: 048
     Dates: start: 2000
  9. QUINAPRIL [Concomitant]
     Indication: HYPERTENSION
     Route: 048
     Dates: start: 2005
  10. FUROSEMIDE [Concomitant]
     Indication: OEDEMA
     Route: 048
     Dates: start: 1999
  11. FUROSEMIDE [Concomitant]
     Indication: HYPERTENSION
     Route: 048
     Dates: start: 1999
  12. POTASSIUM [Concomitant]
     Indication: MINERAL SUPPLEMENTATION
     Route: 048
     Dates: start: 2000
  13. PAXIL CR [Concomitant]
     Indication: DEPRESSION
     Route: 048
     Dates: start: 2005
  14. PAXIL CR [Concomitant]
     Indication: ANXIETY
     Route: 048
     Dates: start: 2005
  15. TRAZADONE [Concomitant]
     Indication: SLEEP DISORDER
     Route: 048
     Dates: start: 2004
  16. AMBIEN [Concomitant]
     Indication: SLEEP DISORDER
     Route: 048
  17. METHOCARBAMOL [Concomitant]
     Indication: MUSCLE RELAXANT THERAPY
     Route: 048
     Dates: start: 2005
  18. FLEXERAL [Concomitant]
     Indication: MUSCLE RELAXANT THERAPY
     Dates: end: 2005
  19. GENERIC VICODIN [Concomitant]
     Indication: PAIN
     Dosage: 5 500 PRN
     Route: 048
     Dates: start: 2008
  20. ULTRAM [Concomitant]
     Indication: PAIN
     Dates: end: 2008
  21. FLONASE [Concomitant]
     Indication: HOUSE DUST ALLERGY
     Dosage: 0.5
  22. MULTIPLE OTC SUPPLEMENTS [Concomitant]

REACTIONS (12)
  - Hypothyroidism [Unknown]
  - Sjogren^s syndrome [Unknown]
  - Bronchitis [Recovered/Resolved]
  - Pathogen resistance [Unknown]
  - Intervertebral disc degeneration [Not Recovered/Not Resolved]
  - Fatigue [Recovered/Resolved]
  - Salivary gland calculus [Recovered/Resolved]
  - Coeliac disease [Not Recovered/Not Resolved]
  - Weight decreased [Unknown]
  - Dyspepsia [Unknown]
  - Malaise [Unknown]
  - Drug dose omission [Unknown]
